FAERS Safety Report 13275160 (Version 2)
Quarter: 2017Q2

REPORT INFORMATION
  Report Type: Report from Study
  Country: JP (occurrence: JP)
  Receive Date: 20170227
  Receipt Date: 20170406
  Transmission Date: 20170830
  Serious: Yes (Other)
  Sender: FDA-Public Use
  Company Number: JP-CONCORDIA PHARMACEUTICALS INC.-E2B_00007884

PATIENT
  Age: 86 Year
  Sex: Male

DRUGS (19)
  1. MAGMITT [Concomitant]
     Active Substance: MAGNESIUM OXIDE
     Indication: PARKINSONISM
     Dosage: BLINDED
     Route: 048
     Dates: start: 20151216, end: 20160301
  2. RIVOTRIL [Concomitant]
     Active Substance: CLONAZEPAM
  3. KETOPROFEN. [Concomitant]
     Active Substance: KETOPROFEN
  4. METHADERM CREAM [Concomitant]
  5. MADOPAR [Concomitant]
     Active Substance: BENSERAZIDE HYDROCHLORIDE\LEVODOPA
  6. DOMPERIDONE [Concomitant]
     Active Substance: DOMPERIDONE
  7. EURAX [Concomitant]
     Active Substance: CROTAMITON
  8. RISUMIC [Concomitant]
     Active Substance: AMEZINIUM METILSULFATE
  9. LECICARBON [Concomitant]
     Active Substance: SODIUM BICARBONATE\SODIUM PHOSPHATE, MONOBASIC
  10. MAGMITT [Concomitant]
     Active Substance: MAGNESIUM OXIDE
     Indication: DEMENTIA WITH LEWY BODIES
     Route: 048
     Dates: start: 20160302, end: 20161013
  11. ZONISAMIDE. [Suspect]
     Active Substance: ZONISAMIDE
     Indication: PARKINSONISM
     Route: 048
     Dates: start: 20151216, end: 20160301
  12. ZONISAMIDE. [Suspect]
     Active Substance: ZONISAMIDE
     Indication: DEMENTIA WITH LEWY BODIES
     Route: 048
     Dates: start: 20160302, end: 20161013
  13. SENNA [Concomitant]
     Active Substance: SENNA LEAF\SENNOSIDES\SENNOSIDES A AND B
  14. BESTRON [Concomitant]
  15. ARICEPT [Concomitant]
     Active Substance: DONEPEZIL HYDROCHLORIDE
  16. SANCOBA [Concomitant]
     Active Substance: CYANOCOBALAMIN
     Indication: DEMENTIA WITH LEWY BODIES
     Route: 048
     Dates: start: 20160302, end: 20161013
  17. BETANIS [Concomitant]
     Active Substance: MIRABEGRON
  18. URIEF OD [Concomitant]
  19. SANCOBA [Concomitant]
     Active Substance: CYANOCOBALAMIN
     Indication: PARKINSONISM
     Dosage: BLINDED
     Route: 048
     Dates: start: 20151216, end: 20160301

REACTIONS (1)
  - Prostate cancer [Not Recovered/Not Resolved]

NARRATIVE: CASE EVENT DATE: 20161007
